FAERS Safety Report 5032242-9 (Version None)
Quarter: 2006Q2

REPORT INFORMATION
  Report Type: 
  Country: None (occurrence: None)
  Receive Date: 20060619
  Receipt Date: 20060606
  Transmission Date: 20061013
  Serious: Yes (Other)
  Sender: FDA-Public Use
  Company Number: HQWYE504404MAY05

PATIENT
  Age: 55 Year
  Sex: Female

DRUGS (3)
  1. PREMPRO [Suspect]
     Indication: HORMONE REPLACEMENT THERAPY
     Dosage: ORAL
     Route: 048
     Dates: start: 19950101, end: 20000101
  2. PREMARIN [Suspect]
  3. PROVERA [Suspect]

REACTIONS (6)
  - BREAST CANCER METASTATIC [None]
  - DIVERTICULITIS [None]
  - HAEMORRHOIDS [None]
  - LIPOMA OF BREAST [None]
  - OESTROGEN RECEPTOR ASSAY POSITIVE [None]
  - PROGESTERONE RECEPTOR ASSAY POSITIVE [None]
